FAERS Safety Report 23223696 (Version 1)
Quarter: 2023Q4

REPORT INFORMATION
  Report Type: Report from Study
  Country: IT (occurrence: IT)
  Receive Date: 20231124
  Receipt Date: 20231124
  Transmission Date: 20240110
  Serious: Yes (Life-Threatening)
  Sender: FDA-Public Use
  Company Number: None

PATIENT
  Age: 51 Year
  Sex: Male
  Weight: 62 kg

DRUGS (5)
  1. PACLITAXEL [Suspect]
     Active Substance: PACLITAXEL
     Indication: Lung neoplasm
     Dosage: 200 MG/MQ Q 21,UNIT DOSE:350MG,FREQUENCY TIME:21 DAYS
     Dates: start: 20231012, end: 20231012
  2. ONDANSETRON B. BRAUN [Concomitant]
     Indication: Chemotherapy side effect prophylaxis
     Dosage: 8MG FIS 100ML IV, FREQUENCY TIME:21 DAYS
     Dates: start: 20231012, end: 20231012
  3. FAMOTIDINE [Concomitant]
     Active Substance: FAMOTIDINE
     Indication: Chemotherapy side effect prophylaxis
     Dosage: 20MG FIS 100ML EV, FREQUENCY TIME:21 DAYS
     Dates: start: 20231012, end: 20231012
  4. DEXAMETHASONE [Concomitant]
     Active Substance: DEXAMETHASONE
     Indication: Chemotherapy side effect prophylaxis
     Dosage: 20MG IN FIS 100ML EV, FREQUENCY TIME:21 DAYS
     Dates: start: 20231012, end: 20231012
  5. CHLORPHENIRAMINE MALEATE [Concomitant]
     Active Substance: CHLORPHENIRAMINE MALEATE
     Indication: Chemotherapy side effect prophylaxis
     Dosage: 10 MG IM, FREQUENCY TIME:21 DAYS
     Dates: start: 20231012, end: 20231012

REACTIONS (5)
  - Oxygen saturation decreased [Recovered/Resolved]
  - Cough [Recovered/Resolved]
  - Feeling hot [Recovered/Resolved]
  - Dyspnoea [Recovered/Resolved]
  - Dyspepsia [Recovered/Resolved]

NARRATIVE: CASE EVENT DATE: 20231012
